FAERS Safety Report 19020937 (Version 1)
Quarter: 2021Q1

REPORT INFORMATION
  Report Type: Spontaneous
  Country: DE (occurrence: DE)
  Receive Date: 20210317
  Receipt Date: 20210317
  Transmission Date: 20210420
  Serious: Yes (Death, Congenital Anomaly, Other)
  Sender: FDA-Public Use
  Company Number: DE-ANIPHARMA-2021-DE-000040

PATIENT
  Age: 1 Day
  Sex: Male
  Weight: 2 kg

DRUGS (8)
  1. HUMINSULIN BASAL [Concomitant]
     Active Substance: INSULIN HUMAN
     Dosage: UNKNOWN DOSE AND FREQUENCY
     Route: 050
     Dates: start: 20200715, end: 20201125
  2. VAXIGRIP [Concomitant]
     Active Substance: INFLUENZA VIRUS VACCINE
     Dosage: UNKNOWN DOSE AND FREQUENCY
     Route: 050
     Dates: start: 20200916, end: 20200916
  3. PRESINOL [Concomitant]
     Active Substance: METHYLDOPA
     Dosage: 1500 MG QD
     Route: 050
     Dates: start: 20201112, end: 20201125
  4. RHOPHYLAC [Concomitant]
     Active Substance: HUMAN RHO(D) IMMUNE GLOBULIN
     Dosage: UNKNOWN DOSE AND FREQUENCY
     Route: 050
  5. JANUMET [Concomitant]
     Active Substance: METFORMIN HYDROCHLORIDE\SITAGLIPTIN PHOSPHATE
     Dosage: 50 MG QD
     Route: 050
     Dates: start: 20200317, end: 20200708
  6. L?THYROXIN [Concomitant]
     Active Substance: LEVOTHYROXINE SODIUM
     Dosage: 50 UG QD
     Route: 050
     Dates: start: 20200317, end: 20201125
  7. CANDESARTAN CILEXETIL. [Suspect]
     Active Substance: CANDESARTAN CILEXETIL
     Indication: FOETAL EXPOSURE DURING PREGNANCY
     Dosage: 12.5 MG  INCREASED TO 16 MG AT UNSPECIFIED TIME
     Route: 050
     Dates: start: 20200317, end: 20201111
  8. NOVORAPID [Concomitant]
     Active Substance: INSULIN ASPART
     Dosage: UNKNOWN DOSE AND FREQUENCY
     Route: 050
     Dates: start: 20200715, end: 20201125

REACTIONS (13)
  - Cranial sutures widening [Not Recovered/Not Resolved]
  - Patent ductus arteriosus [Not Recovered/Not Resolved]
  - Dysmorphism [Not Recovered/Not Resolved]
  - Pulmonary hypoplasia [Not Recovered/Not Resolved]
  - Pancreatic islets hyperplasia [Not Recovered/Not Resolved]
  - Congenital renal disorder [Not Recovered/Not Resolved]
  - Foetal exposure during pregnancy [Unknown]
  - Renal vein thrombosis [Not Recovered/Not Resolved]
  - Death neonatal [Not Recovered/Not Resolved]
  - Newborn persistent pulmonary hypertension [Not Recovered/Not Resolved]
  - Oedema neonatal [Not Recovered/Not Resolved]
  - Joint contracture [Not Recovered/Not Resolved]
  - Atrial septal defect [Not Recovered/Not Resolved]

NARRATIVE: CASE EVENT DATE: 20201125
